FAERS Safety Report 8975817 (Version 1)
Quarter: 2012Q4

REPORT INFORMATION
  Report Type: 
  Country: US (occurrence: US)
  Receive Date: 20121219
  Receipt Date: 20121219
  Transmission Date: 20130627
  Serious: Yes (Other)
  Sender: FDA-Public Use
  Company Number: US-ASTRAZENECA-2012SE02482

PATIENT
  Age: 74 Year
  Sex: Female
  Weight: 112.7 kg

DRUGS (12)
  1. LISINOPRIL [Suspect]
     Route: 048
     Dates: start: 20120831
  2. LISINOPRIL [Suspect]
     Route: 048
  3. CRESTOR [Suspect]
     Route: 048
     Dates: start: 20120321
  4. GABAPENTINE [Concomitant]
     Route: 048
     Dates: start: 20121018
  5. HYDROCODONE-ACETAMINOPHEN [Concomitant]
     Indication: PAIN
     Dosage: 10-32.5 MG, 1 PER 4 HOURS AS NEEDED
     Route: 048
     Dates: start: 20120321
  6. HYDROCHLOROTHIAZIDE [Concomitant]
     Dosage: 25 MG, 1 TABLET ON MON, WED AND FRI
     Route: 048
     Dates: start: 20120321
  7. BROVANA [Concomitant]
     Dosage: 1 INHALATION 3 TIMES DAILY
     Route: 055
     Dates: start: 20120321
  8. NOVOLOG MIX [Concomitant]
     Dosage: FLEXPEN, 70-30 PERCENT, 35 UNITS THREE TIMES IN A DAY, PREMEALS
     Route: 058
     Dates: start: 20120321
  9. NOVOLOG MIX [Concomitant]
     Dosage: FLEXPEN, 70-30 PERCENT, 36 UNITS THREE TIMES PREMEALS
     Route: 058
  10. CLARITIN [Concomitant]
     Route: 048
     Dates: start: 20120321
  11. MUCINEX D [Concomitant]
     Dosage: 60-600 MG, PER 12 HOUR AS NEEDED
     Route: 048
     Dates: start: 20120321
  12. ASPIRIN [Concomitant]
     Route: 048
     Dates: start: 20120321

REACTIONS (17)
  - Cerebrovascular accident [Unknown]
  - Diabetes mellitus [Unknown]
  - Hypercholesterolaemia [Unknown]
  - Cataract [Unknown]
  - Visual acuity reduced [Unknown]
  - Chronic obstructive pulmonary disease [Unknown]
  - Ulcer [Unknown]
  - Essential hypertension [Unknown]
  - Hyperlipidaemia [Unknown]
  - Asthma [Unknown]
  - Abscess limb [Unknown]
  - Cerebrovascular accident [Unknown]
  - Neuropathy peripheral [Unknown]
  - Insomnia [Unknown]
  - Overweight [Unknown]
  - Asthenia [Unknown]
  - Depression [Unknown]
